FAERS Safety Report 6663921-5 (Version None)
Quarter: 2010Q2

REPORT INFORMATION
  Report Type: 
  Country: None (occurrence: None)
  Receive Date: 20100401
  Receipt Date: 20100325
  Transmission Date: 20101027
  Serious: Yes (Life-Threatening, Hospitalization)
  Sender: FDA-Public Use
  Company Number: US-EISAI INC.-E7272-00051-SPO-US

PATIENT
  Age: 81 Year
  Sex: Female
  Weight: 64 kg

DRUGS (5)
  1. ONTAK [Suspect]
     Indication: T-CELL LYMPHOMA
     Route: 041
     Dates: start: 20100303, end: 20100303
  2. ENOXAPARIN SODIUM [Concomitant]
     Route: 058
     Dates: start: 20100302, end: 20100308
  3. HYDROXIZINE [Concomitant]
     Route: 048
     Dates: start: 20100301, end: 20100303
  4. PANTOPRAZOLE [Concomitant]
     Indication: STRESS ULCER
     Route: 042
     Dates: start: 20100304, end: 20100309
  5. VALSARTAN [Concomitant]
     Route: 048
     Dates: start: 20100308, end: 20100309

REACTIONS (3)
  - ARRHYTHMIA [None]
  - BLOOD PRESSURE INCREASED [None]
  - TACHYCARDIA [None]
